FAERS Safety Report 12461849 (Version 1)
Quarter: 2016Q2

REPORT INFORMATION
  Report Type: Spontaneous
  Country: US (occurrence: US)
  Receive Date: 20160613
  Receipt Date: 20160613
  Transmission Date: 20160815
  Serious: No
  Sender: FDA-Public Use
  Company Number: US-BAYER-2016-108523

PATIENT
  Age: 32 Year
  Sex: Female
  Weight: 70.29 kg

DRUGS (1)
  1. LOTRIMIN ULTRA [Suspect]
     Active Substance: BUTENAFINE HYDROCHLORIDE
     Indication: TINEA CRURIS
     Dosage: UNK
     Route: 061
     Dates: start: 20160529, end: 20160530

REACTIONS (3)
  - Peripheral swelling [Recovered/Resolved]
  - Product use issue [None]
  - Burning sensation [Recovered/Resolved]

NARRATIVE: CASE EVENT DATE: 20160529
